FAERS Safety Report 18573640 (Version 5)
Quarter: 2020Q4

REPORT INFORMATION
  Report Type: Spontaneous
  Country: HU (occurrence: HU)
  Receive Date: 20201203
  Receipt Date: 20201231
  Transmission Date: 20210114
  Serious: Yes (Death, Other)
  Sender: FDA-Public Use
  Company Number: NVSC2020HU312014

PATIENT
  Age: 62 Year
  Sex: Male

DRUGS (16)
  1. MOMETASONE [Suspect]
     Active Substance: MOMETASONE
     Indication: STEROID THERAPY
  2. METHYLPREDNISOLONE ACEPONATE [Suspect]
     Active Substance: METHYLPREDNISOLONE ACEPONATE
     Indication: STEROID THERAPY
     Dosage: UNK
     Route: 061
     Dates: start: 2019
  3. MIRTAZAPINE. [Suspect]
     Active Substance: MIRTAZAPINE
     Indication: PRURITUS
     Dosage: UNK
     Route: 048
     Dates: start: 201910, end: 2019
  4. CLOBETASOL PROPIONATE. [Suspect]
     Active Substance: CLOBETASOL PROPIONATE
     Indication: STEROID THERAPY
     Dosage: UNK
     Route: 061
     Dates: start: 2019
  5. CLOBETASOL PROPIONATE. [Suspect]
     Active Substance: CLOBETASOL PROPIONATE
     Indication: CUTANEOUS T-CELL LYMPHOMA
  6. HYDROXYZINE [Suspect]
     Active Substance: HYDROXYZINE HYDROCHLORIDE
     Indication: PRURITUS
     Dosage: UNK
     Route: 065
     Dates: start: 2019
  7. PSORALEN [Suspect]
     Active Substance: PSORALEN
     Indication: CUTANEOUS T-CELL LYMPHOMA
     Dosage: UNK
     Route: 065
  8. METHYLPREDNISOLONE ACEPONATE [Suspect]
     Active Substance: METHYLPREDNISOLONE ACEPONATE
     Indication: CUTANEOUS T-CELL LYMPHOMA
  9. MOMETASONE [Suspect]
     Active Substance: MOMETASONE
     Indication: CUTANEOUS T-CELL LYMPHOMA
     Dosage: UNK
     Route: 061
     Dates: start: 2019
  10. CETIRIZINE [Suspect]
     Active Substance: CETIRIZINE HYDROCHLORIDE
     Indication: PRURITUS
     Dosage: UNK
     Route: 065
     Dates: start: 2019
  11. CETIRIZINE [Suspect]
     Active Substance: CETIRIZINE HYDROCHLORIDE
     Indication: CUTANEOUS T-CELL LYMPHOMA
  12. BILASTINE [Suspect]
     Active Substance: BILASTINE
     Indication: PRURITUS
     Dosage: UNK
     Route: 065
     Dates: start: 2019
  13. BRENTUXIMAB [Suspect]
     Active Substance: BRENTUXIMAB VEDOTIN
     Indication: PRURITUS
     Dosage: UNK
     Route: 065
  14. INTERFERON ALFA 2B [Suspect]
     Active Substance: INTERFERON ALFA-2B
     Indication: PRURITUS
     Dosage: (3X3 MU), TWO INJECTIONS
     Route: 058
     Dates: start: 201909
  15. HYDROXYZINE [Suspect]
     Active Substance: HYDROXYZINE HYDROCHLORIDE
     Indication: CUTANEOUS T-CELL LYMPHOMA
  16. BILASTINE [Suspect]
     Active Substance: BILASTINE
     Indication: CUTANEOUS T-CELL LYMPHOMA

REACTIONS (5)
  - Product use in unapproved indication [Fatal]
  - Somnolence [Unknown]
  - Off label use [Unknown]
  - Acute myocardial infarction [Fatal]
  - Drug ineffective [Unknown]

NARRATIVE: CASE EVENT DATE: 2019
